FAERS Safety Report 11110972 (Version 1)
Quarter: 2015Q2

REPORT INFORMATION
  Report Type: Other
  Country: BR (occurrence: BR)
  Receive Date: 20150513
  Receipt Date: 20150513
  Transmission Date: 20150821
  Serious: Yes (Other)
  Sender: FDA-Public Use
  Company Number: BR-SHIRE-BR201504119

PATIENT
  Sex: Male
  Weight: 21 kg

DRUGS (3)
  1. ELAPRASE [Suspect]
     Active Substance: IDURSULFASE
     Dosage: 12 MG (TWO VIALS), 1X/WEEK
     Route: 041
     Dates: start: 2014
  2. ELAPRASE [Suspect]
     Active Substance: IDURSULFASE
     Indication: MUCOPOLYSACCHARIDOSIS II
     Dosage: 12 MG (TWO VIALS), 1X/WEEK
     Route: 041
     Dates: start: 201101, end: 2013
  3. NEULEPTIL                          /00038401/ [Concomitant]
     Active Substance: PERICIAZINE
     Indication: MENTAL DISORDER
     Dosage: 8 GTT, 1X/DAY:QD
     Route: 048
     Dates: start: 201411

REACTIONS (3)
  - Feeding disorder [Recovering/Resolving]
  - Pyrexia [Recovered/Resolved]
  - Drug dose omission [Recovered/Resolved]

NARRATIVE: CASE EVENT DATE: 2013
